FAERS Safety Report 5375225-1 (Version None)
Quarter: 2007Q2

REPORT INFORMATION
  Report Type: 
  Country: None (occurrence: None)
  Receive Date: 20070629
  Receipt Date: 20070131
  Transmission Date: 20071010
  Serious: Yes (Other)
  Sender: FDA-Public Use
  Company Number: US-ASTRAZENECA-2007UW02213

PATIENT
  Sex: Female

DRUGS (3)
  1. TAMOXIFEN CITRATE [Suspect]
     Route: 048
     Dates: start: 19850101, end: 20000101
  2. RADIATION [Concomitant]
  3. CHEMOTHERAPY [Concomitant]

REACTIONS (3)
  - BREAST CANCER [None]
  - DISEASE RECURRENCE [None]
  - UTERINE CANCER [None]
